FAERS Safety Report 26218418 (Version 1)
Quarter: 2025Q4

REPORT INFORMATION
  Report Type: Spontaneous
  Country: EU (occurrence: EU)
  Receive Date: 20251231
  Receipt Date: 20251231
  Transmission Date: 20260117
  Serious: Yes (Hospitalization)
  Sender: PFIZER
  Company Number: EU-GLAXOSMITHKLINE-GR2021GSK015072

PATIENT
  Age: 64 Year
  Sex: Female
  Weight: 54 kg

DRUGS (6)
  1. CARBOPLATIN [Suspect]
     Active Substance: CARBOPLATIN
     Indication: Ovarian cancer
     Dosage: 470 MG
     Route: 042
     Dates: start: 20201202, end: 20210113
  2. PACLITAXEL [Suspect]
     Active Substance: PACLITAXEL
     Indication: Ovarian cancer
     Dosage: 280 MG
     Route: 042
     Dates: start: 20201202, end: 20210113
  3. BEVACIZUMAB [Suspect]
     Active Substance: BEVACIZUMAB
     Indication: Ovarian cancer
     Dosage: 405 MG
     Route: 042
     Dates: start: 20201202, end: 20210113
  4. PLACEBO [Suspect]
     Active Substance: PLACEBO
     Indication: Ovarian cancer
     Dosage: UNK
     Dates: start: 20201223, end: 20210113
  5. LEVOTHYROXINE [Concomitant]
     Active Substance: LEVOTHYROXINE
     Indication: Hypothyroidism
     Dosage: 75 MG, QD
     Route: 048
     Dates: start: 2017
  6. METOPROLOL [Concomitant]
     Active Substance: METOPROLOL
     Indication: Hypertension
     Dosage: FREQ:12 H;25 MG, BID
     Route: 048
     Dates: start: 2018

REACTIONS (4)
  - Vomiting [Recovered/Resolved]
  - Neutropenic colitis [Recovered/Resolved]
  - Posterior reversible encephalopathy syndrome [Recovered/Resolved]
  - Cytokine release syndrome [Recovered/Resolved]

NARRATIVE: CASE EVENT DATE: 20210114
